FAERS Safety Report 4778036-0 (Version None)
Quarter: 2005Q3

REPORT INFORMATION
  Report Type: 
  Country: None (occurrence: None)
  Receive Date: 20050923
  Receipt Date: 20050923
  Transmission Date: 20060218
  Serious: Yes (Other)
  Sender: FDA-Public Use
  Company Number: None

PATIENT
  Age: 59 Year
  Sex: Male
  Weight: 83.5 kg

DRUGS (3)
  1. TERAZOSIN HCL [Suspect]
  2. GATIFLOXACIN [Concomitant]
  3. HYDROCORTISONE [Concomitant]

REACTIONS (1)
  - HEADACHE [None]
